FAERS Safety Report 26043953 (Version 1)
Quarter: 2025Q4

REPORT INFORMATION
  Report Type: Spontaneous
  Country: CN (occurrence: CN)
  Receive Date: 20251114
  Receipt Date: 20251114
  Transmission Date: 20260117
  Serious: Yes (Hospitalization, Other)
  Sender: ABBVIE
  Company Number: CN-TAKEDA-2025TUS099316

PATIENT
  Age: 39 Year
  Sex: Female
  Weight: 55 kg

DRUGS (2)
  1. LEUPROLIDE ACETATE [Suspect]
     Active Substance: LEUPROLIDE ACETATE
     Indication: Chemotherapy
     Dosage: 3.75 MILLIGRAM, QD
     Route: 030
     Dates: start: 20250926, end: 20250926
  2. PALBOCICLIB [Suspect]
     Active Substance: PALBOCICLIB
     Indication: Chemotherapy
     Dosage: 100 MILLIGRAM, QD
     Route: 048
     Dates: start: 20250926, end: 20251017

REACTIONS (1)
  - Myelosuppression [Unknown]

NARRATIVE: CASE EVENT DATE: 20251027
